FAERS Safety Report 4849967-8 (Version None)
Quarter: 2005Q4

REPORT INFORMATION
  Report Type: 
  Country: None (occurrence: None)
  Receive Date: 20051102
  Receipt Date: 20050615
  Transmission Date: 20060501
  Serious: No
  Sender: FDA-Public Use
  Company Number: 200511199BWH

PATIENT

DRUGS (1)
  1. LEVITRA [Suspect]
     Dosage: ORAL
     Route: 048

REACTIONS (1)
  - CONSTIPATION [None]
